FAERS Safety Report 13447125 (Version 1)
Quarter: 2017Q2

REPORT INFORMATION
  Report Type: Spontaneous
  Country: US (occurrence: US)
  Receive Date: 20170415
  Receipt Date: 20170415
  Transmission Date: 20170830
  Serious: Yes (Disabling)
  Sender: FDA-Public Use
  Company Number: None

PATIENT
  Age: 40 Year
  Sex: Female
  Weight: 74.25 kg

DRUGS (1)
  1. PREVIDENT 5000 SENSITIVE [Suspect]
     Active Substance: POTASSIUM NITRATE\SODIUM FLUORIDE
     Indication: SENSITIVITY OF TEETH
     Dosage: OTHER ROUTE:TOOTHPASTE?
     Dates: start: 20170313, end: 20170411

REACTIONS (3)
  - Headache [None]
  - Dyspepsia [None]
  - Toothache [None]

NARRATIVE: CASE EVENT DATE: 20170413
